FAERS Safety Report 11047403 (Version 1)
Quarter: 2015Q2

REPORT INFORMATION
  Report Type: Spontaneous
  Country: PR (occurrence: PR)
  Receive Date: 20150420
  Receipt Date: 20150420
  Transmission Date: 20150821
  Serious: No
  Sender: FDA-Public Use
  Company Number: PR-BIOGENIDEC-2015BI038959

PATIENT
  Age: 64 Year
  Sex: Female

DRUGS (1)
  1. TYSABRI [Suspect]
     Active Substance: NATALIZUMAB
     Indication: MULTIPLE SCLEROSIS
     Route: 042
     Dates: start: 20090807, end: 20120710

REACTIONS (4)
  - Diabetes mellitus [Not Recovered/Not Resolved]
  - Panic attack [Unknown]
  - Blood cholesterol increased [Unknown]
  - Depression [Not Recovered/Not Resolved]
